FAERS Safety Report 8175748-6 (Version None)
Quarter: 2012Q1

REPORT INFORMATION
  Report Type: 
  Country: None (occurrence: None)
  Receive Date: 20120228
  Receipt Date: 20120228
  Transmission Date: 20120608
  Serious: Yes (Hospitalization)
  Sender: FDA-Public Use
  Company Number: None

PATIENT
  Age: 79 Year
  Sex: Male
  Weight: 70.5 kg

DRUGS (2)
  1. SIMVASTATIN [Suspect]
     Indication: LIVER FUNCTION TEST ABNORMAL
     Dosage: 10 MG EVERY DAY PO
     Route: 048
     Dates: start: 20110928, end: 20120210
  2. AMIODARONE HCL [Suspect]
     Indication: LIVER FUNCTION TEST ABNORMAL
     Dosage: 100 MG EVERY DAY PO
     Route: 048
     Dates: start: 20110928, end: 20120221

REACTIONS (3)
  - SYNCOPE [None]
  - ALANINE AMINOTRANSFERASE INCREASED [None]
  - ASPARTATE AMINOTRANSFERASE INCREASED [None]
